FAERS Safety Report 22321482 (Version 7)
Quarter: 2023Q4

REPORT INFORMATION
  Report Type: Report from Study
  Country: US (occurrence: US)
  Receive Date: 20230515
  Receipt Date: 20231103
  Transmission Date: 20240110
  Serious: Yes (Life-Threatening, Hospitalization, Other)
  Sender: FDA-Public Use
  Company Number: US-HORIZON THERAPEUTICS-HZN-2023-003131

PATIENT

DRUGS (15)
  1. RAVICTI [Suspect]
     Active Substance: GLYCEROL PHENYLBUTYRATE
     Indication: Ornithine transcarbamoylase deficiency
     Dosage: (FIRST DOSE)
     Route: 065
     Dates: start: 20221209
  2. RAVICTI [Suspect]
     Active Substance: GLYCEROL PHENYLBUTYRATE
     Indication: Ornithine transcarbamoylase deficiency
     Dosage: 1.6 ML, TID
     Route: 048
     Dates: start: 202301
  3. RAVICTI [Suspect]
     Active Substance: GLYCEROL PHENYLBUTYRATE
     Indication: Urea cycle disorder
     Dosage: 1.6 ML, 1.1GM/ML
     Route: 048
     Dates: start: 202306
  4. RAVICTI [Suspect]
     Active Substance: GLYCEROL PHENYLBUTYRATE
     Dosage: 1.8 MG, DAILY
     Route: 048
  5. RAVICTI [Suspect]
     Active Substance: GLYCEROL PHENYLBUTYRATE
     Dosage: UNK
  6. RAVICTI [Suspect]
     Active Substance: GLYCEROL PHENYLBUTYRATE
     Dosage: UNK
  7. RAVICTI [Suspect]
     Active Substance: GLYCEROL PHENYLBUTYRATE
     Dosage: UNK
     Dates: start: 202301
  8. RAVICTI [Suspect]
     Active Substance: GLYCEROL PHENYLBUTYRATE
     Dosage: UNK
  9. RAVICTI [Suspect]
     Active Substance: GLYCEROL PHENYLBUTYRATE
     Dosage: UNK
  10. RAVICTI [Suspect]
     Active Substance: GLYCEROL PHENYLBUTYRATE
     Dosage: UNK
  11. RAVICTI [Suspect]
     Active Substance: GLYCEROL PHENYLBUTYRATE
     Dosage: UNK
  12. RAVICTI [Suspect]
     Active Substance: GLYCEROL PHENYLBUTYRATE
     Dosage: 1.8 ML, TID
     Route: 048
     Dates: start: 202301
  13. PREVACID [Concomitant]
     Active Substance: LANSOPRAZOLE
     Indication: Reflux gastritis
     Dosage: 5 MG, DAILY
     Route: 065
  14. CYCLINEX 1 [Concomitant]
     Dosage: 890 UNK
     Route: 065
  15. NUTRAMIGEN [Concomitant]
     Active Substance: AMINO ACIDS
     Dosage: 25 UNK
     Route: 065

REACTIONS (9)
  - Brain injury [Unknown]
  - Renal injury [Unknown]
  - Hyperammonaemia [Recovered/Resolved]
  - Ammonia increased [Recovered/Resolved]
  - Body temperature decreased [Unknown]
  - Eating disorder [Recovered/Resolved]
  - Wheezing [Recovered/Resolved]
  - Vomiting [Recovering/Resolving]
  - Hospitalisation [Unknown]

NARRATIVE: CASE EVENT DATE: 20230101
